FAERS Safety Report 19973386 (Version 1)
Quarter: 2021Q4

REPORT INFORMATION
  Report Type: Spontaneous
  Country: US (occurrence: US)
  Receive Date: 20211020
  Receipt Date: 20211020
  Transmission Date: 20220303
  Serious: No
  Sender: FDA-Public Use
  Company Number: US-JNJFOC-20211020083

PATIENT
  Age: 40 Year
  Sex: Female

DRUGS (2)
  1. TYLENOL [Suspect]
     Active Substance: ACETAMINOPHEN
     Indication: Product used for unknown indication
     Route: 065
  2. COVID-19 VACCINE [Concomitant]
     Indication: COVID-19 immunisation
     Route: 065
     Dates: start: 20210914

REACTIONS (9)
  - Headache [Recovering/Resolving]
  - Dizziness [Recovering/Resolving]
  - Nausea [Recovering/Resolving]
  - Pyrexia [Recovering/Resolving]
  - Heart rate increased [Recovering/Resolving]
  - Chest pain [Recovering/Resolving]
  - Hyperhidrosis [Recovering/Resolving]
  - Dysstasia [Recovering/Resolving]
  - Respiratory rate decreased [Recovering/Resolving]

NARRATIVE: CASE EVENT DATE: 20210914
